FAERS Safety Report 20196259 (Version 1)
Quarter: 2021Q4

REPORT INFORMATION
  Report Type: Other
  Country: SE (occurrence: SE)
  Receive Date: 20211216
  Receipt Date: 20211216
  Transmission Date: 20220304
  Serious: Yes (Other)
  Sender: FDA-Public Use
  Company Number: None

PATIENT

DRUGS (2)
  1. OMNIPAQUE [Suspect]
     Active Substance: IOHEXOL
     Indication: Computerised tomogram
     Dosage: 97 ML, SINGLE
     Route: 042
     Dates: start: 20201026, end: 20201026
  2. OMNIPAQUE [Suspect]
     Active Substance: IOHEXOL
     Indication: Product used for unknown indication

REACTIONS (3)
  - Sensation of foreign body [Unknown]
  - Urticaria [Unknown]
  - Cough [Unknown]

NARRATIVE: CASE EVENT DATE: 20201026
